FAERS Safety Report 5329965-0 (Version None)
Quarter: 2007Q2

REPORT INFORMATION
  Report Type: 
  Country: None (occurrence: None)
  Receive Date: 20070521
  Receipt Date: 20070517
  Transmission Date: 20071010
  Serious: Yes (Other)
  Sender: FDA-Public Use
  Company Number: JP-BRISTOL-MYERS SQUIBB COMPANY-13756101

PATIENT
  Age: 10 Month
  Sex: Female

DRUGS (4)
  1. PARAPLATIN [Suspect]
     Indication: RETINOBLASTOMA
     Route: 041
  2. CYCLOPHOSPHAMIDE [Suspect]
     Indication: RETINOBLASTOMA
  3. VINCRISTINE [Suspect]
  4. THERARUBICIN [Suspect]
     Indication: EXTRAOCULAR RETINOBLASTOMA
     Route: 042

REACTIONS (2)
  - CONVULSION [None]
  - RENAL SALT-WASTING SYNDROME [None]
